FAERS Safety Report 7434253-2 (Version None)
Quarter: 2011Q2

REPORT INFORMATION
  Report Type: 
  Country: None (occurrence: None)
  Receive Date: 20110425
  Receipt Date: 20110419
  Transmission Date: 20111010
  Serious: No
  Sender: FDA-Public Use
  Company Number: US-PFIZER INC-2011085977

PATIENT
  Sex: Female
  Weight: 59 kg

DRUGS (4)
  1. NEURONTIN [Suspect]
     Indication: ANXIETY
     Dosage: 100 MG, 2X/DAY
     Route: 048
     Dates: start: 20110302, end: 20110301
  2. WELLBUTRIN [Concomitant]
     Dosage: UNK
  3. NEURONTIN [Suspect]
     Dosage: 300 MG, 4X/DAY
     Route: 048
     Dates: start: 20110301
  4. NEURONTIN [Suspect]
     Dosage: 300 MG, 2X/DAY
     Route: 048
     Dates: start: 20110301, end: 20110301

REACTIONS (2)
  - IRRITABILITY [None]
  - AGITATION [None]
